FAERS Safety Report 17581020 (Version 5)
Quarter: 2020Q3

REPORT INFORMATION
  Report Type: Report from Study
  Country: BR (occurrence: BR)
  Receive Date: 20200325
  Receipt Date: 20200909
  Transmission Date: 20201102
  Serious: Yes (Other)
  Sender: FDA-Public Use
  Company Number: NVSC2020BR083451

PATIENT
  Age: 74 Year
  Sex: Male
  Weight: 64.5 kg

DRUGS (4)
  1. COSENTYX [Suspect]
     Active Substance: SECUKINUMAB
     Indication: PSORIASIS
     Dosage: 2 PENS 150 MG, QMO (AT THE BELLY)
     Route: 065
     Dates: start: 20200127
  2. COSENTYX [Suspect]
     Active Substance: SECUKINUMAB
     Dosage: 300 MG, UNKNOWN
     Route: 058
     Dates: end: 202006
  3. GLIBENCLAMIDE [Concomitant]
     Active Substance: GLYBURIDE
     Indication: DIABETES MELLITUS
     Dosage: 5 MG, QD
     Route: 048
  4. COSENTYX [Suspect]
     Active Substance: SECUKINUMAB
     Dosage: 300 MG, QW
     Route: 058
     Dates: start: 20200211, end: 20200218

REACTIONS (26)
  - Palatal disorder [Recovered/Resolved]
  - Thirst [Recovered/Resolved]
  - Headache [Recovered/Resolved]
  - Diabetes mellitus [Recovered/Resolved]
  - Psychiatric symptom [Recovered/Resolved]
  - Thirst [Recovered/Resolved]
  - Hyperglycaemia [Unknown]
  - Decreased appetite [Recovered/Resolved]
  - Confusional state [Unknown]
  - Pruritus [Recovering/Resolving]
  - Malaise [Recovering/Resolving]
  - Incorrect dose administered [Unknown]
  - Hyperglycaemia [Recovered/Resolved]
  - Asthenia [Recovered/Resolved]
  - Pollakiuria [Recovered/Resolved]
  - Poor quality sleep [Recovered/Resolved]
  - Weight decreased [Recovered/Resolved]
  - Asthenia [Recovered/Resolved]
  - Wound [Recovered/Resolved]
  - Inappropriate schedule of product administration [Recovered/Resolved]
  - Headache [Recovered/Resolved]
  - Pollakiuria [Recovered/Resolved]
  - Eating disorder [Recovered/Resolved]
  - Weight decreased [Recovered/Resolved]
  - Pain in extremity [Recovered/Resolved]
  - Psychiatric symptom [Recovered/Resolved]

NARRATIVE: CASE EVENT DATE: 20200127
